FAERS Safety Report 21033579 (Version 1)
Quarter: 2022Q3

REPORT INFORMATION
  Report Type: Spontaneous
  Country: US (occurrence: US)
  Receive Date: 20220701
  Receipt Date: 20220701
  Transmission Date: 20221027
  Serious: Yes (Other)
  Sender: FDA-Public Use
  Company Number: US-sptaiwan-2022SUN001965

PATIENT
  Sex: Female

DRUGS (14)
  1. LATUDA [Suspect]
     Active Substance: LURASIDONE HYDROCHLORIDE
     Dosage: 40 MG, BID
     Route: 048
  2. CLONAZEPAM [Suspect]
     Active Substance: CLONAZEPAM
     Indication: Anxiety
     Dosage: 1 MG, QD PRN
     Route: 048
  3. CELECOXIB [Concomitant]
     Active Substance: CELECOXIB
     Indication: Pain
     Dosage: 200 MG, QD (AS NEEDED)
     Route: 065
  4. CELECOXIB [Concomitant]
     Active Substance: CELECOXIB
     Indication: Inflammation
  5. GABAPENTIN [Concomitant]
     Active Substance: GABAPENTIN
     Dosage: 300 MG, HS (MAY INCREASE UPTO 3 QHS FOR RELIEF)
     Route: 048
  6. GEODON [Concomitant]
     Active Substance: ZIPRASIDONE HYDROCHLORIDE\ZIPRASIDONE MESYLATE
     Dosage: 40 MG, QD
     Route: 048
  7. GEODON [Concomitant]
     Active Substance: ZIPRASIDONE HYDROCHLORIDE\ZIPRASIDONE MESYLATE
     Dosage: 80 MG, QD
     Route: 048
  8. LAMICTAL [Concomitant]
     Active Substance: LAMOTRIGINE
     Dosage: 25 MG, QD (WEEK 1 AND WEEK 2)
     Route: 048
  9. LAMICTAL [Concomitant]
     Active Substance: LAMOTRIGINE
     Dosage: 100 MG, QD
     Route: 048
  10. LAMICTAL [Concomitant]
     Active Substance: LAMOTRIGINE
     Dosage: 100 MG, BID
     Route: 048
  11. MAGNESIUM [Concomitant]
     Active Substance: MAGNESIUM
     Dosage: 400 MG, HS
     Route: 065
  12. MAXALT-MLT [Concomitant]
     Active Substance: RIZATRIPTAN BENZOATE
     Indication: Headache
     Dosage: 10 MG (1 TAB AT ONSET OF SEVERE HA, REPEAT IN 2HRS IF NEEDED, NO MORE THAT 2/WK)
     Route: 065
  13. RIBOFLAVIN [Concomitant]
     Active Substance: RIBOFLAVIN
     Dosage: 100 MG, BID
     Route: 065
  14. AMBIEN [Concomitant]
     Active Substance: ZOLPIDEM TARTRATE
     Indication: Insomnia
     Dosage: 5 MG, HS, PRN
     Route: 048

REACTIONS (18)
  - Bipolar disorder [Unknown]
  - Uterine leiomyoma [Unknown]
  - Post concussion syndrome [Unknown]
  - Nicotine dependence [Unknown]
  - Post-traumatic stress disorder [Unknown]
  - Migraine without aura [Unknown]
  - Arthralgia [Unknown]
  - Lumbar radiculopathy [Unknown]
  - Neuralgia [Unknown]
  - Neuritis [Unknown]
  - Vaginal infection [Unknown]
  - Uterovaginal prolapse [Unknown]
  - Blood pressure increased [Unknown]
  - Muscle injury [Unknown]
  - Fall [Unknown]
  - Tendon injury [Unknown]
  - Insomnia [Unknown]
  - Off label use [Unknown]
